FAERS Safety Report 26133607 (Version 1)
Quarter: 2025Q4

REPORT INFORMATION
  Report Type: Spontaneous
  Country: PE (occurrence: PE)
  Receive Date: 20251209
  Receipt Date: 20251209
  Transmission Date: 20260117
  Serious: Yes (Other)
  Sender: ALKEM
  Company Number: PE-ALKEM LABORATORIES LIMITED-PE-ALKEM-2025-11469

PATIENT
  Age: 69 Year
  Sex: Female

DRUGS (1)
  1. VANCOMYCIN [Suspect]
     Active Substance: VANCOMYCIN
     Indication: Cellulitis
     Dosage: 1 GRAM, BID
     Route: 042

REACTIONS (1)
  - Linear IgA disease [Recovered/Resolved]
